FAERS Safety Report 13806506 (Version 5)
Quarter: 2018Q1

REPORT INFORMATION
  Report Type: Report from Study
  Country: US (occurrence: US)
  Receive Date: 20170728
  Receipt Date: 20180125
  Transmission Date: 20180508
  Serious: No
  Sender: FDA-Public Use
  Company Number: US-AMGEN-USASL2017071551

PATIENT
  Age: 60 Year
  Sex: Male

DRUGS (2)
  1. REPATHA [Suspect]
     Active Substance: EVOLOCUMAB
     Indication: LOW DENSITY LIPOPROTEIN INCREASED
     Dosage: 140 MG, Q2WK
     Route: 065
     Dates: start: 20170501
  2. REPATHA [Suspect]
     Active Substance: EVOLOCUMAB
     Indication: HYPERLIPIDAEMIA

REACTIONS (8)
  - Injection site rash [Unknown]
  - Oropharyngeal pain [Unknown]
  - Upper-airway cough syndrome [Unknown]
  - Injection site bruising [Unknown]
  - Dysgeusia [Unknown]
  - Injection site erythema [Unknown]
  - Pain [Unknown]
  - Malaise [Unknown]
